FAERS Safety Report 8451142-5 (Version None)
Quarter: 2012Q2

REPORT INFORMATION
  Report Type: 
  Country: None (occurrence: None)
  Receive Date: 20120620
  Receipt Date: 20120611
  Transmission Date: 20120825
  Serious: Yes (Hospitalization)
  Sender: FDA-Public Use
  Company Number: TR-ROCHE-1078002

PATIENT
  Sex: Male

DRUGS (1)
  1. XELODA [Suspect]
     Indication: PANCREATIC CARCINOMA
     Dosage: 3+3
     Route: 048

REACTIONS (3)
  - BLOOD UREA INCREASED [None]
  - PYREXIA [None]
  - ABDOMINAL PAIN UPPER [None]
